FAERS Safety Report 10590810 (Version 1)
Quarter: 2014Q4

REPORT INFORMATION
  Report Type: Spontaneous
  Country: US (occurrence: US)
  Receive Date: 20141118
  Receipt Date: 20141118
  Transmission Date: 20150529
  Serious: Yes (Other)
  Sender: FDA-Public Use
  Company Number: US-GLAXOSMITHKLINE-US2014GSK022928

PATIENT
  Sex: Male

DRUGS (3)
  1. PROMACTA [Suspect]
     Active Substance: ELTROMBOPAG OLAMINE
     Indication: IMMUNE THROMBOCYTOPENIC PURPURA
     Dosage: 50 MG, U
     Dates: start: 2010
  2. TESTOSTERONE. [Concomitant]
     Active Substance: TESTOSTERONE
  3. SAW PALMETTO [Concomitant]
     Active Substance: SAW PALMETTO

REACTIONS (3)
  - Platelet count abnormal [Not Recovered/Not Resolved]
  - Platelet transfusion [Unknown]
  - Thrombocytopenia [Recovering/Resolving]

NARRATIVE: CASE EVENT DATE: 2010
